FAERS Safety Report 11173482 (Version 1)
Quarter: 2015Q2

REPORT INFORMATION
  Report Type: Spontaneous
  Country: US (occurrence: US)
  Receive Date: 20150609
  Receipt Date: 20150609
  Transmission Date: 20150821
  Serious: Yes (Hospitalization, Other)
  Sender: FDA-Public Use
  Company Number: US-AMGEN-USASP2015055299

PATIENT
  Age: 60 Year
  Sex: Male

DRUGS (3)
  1. XGEVA [Suspect]
     Active Substance: DENOSUMAB
     Indication: PRODUCT USED FOR UNKNOWN INDICATION
     Dosage: 120 MG, UNK
     Route: 065
  2. METOPROLOL [Concomitant]
     Active Substance: METOPROLOL
     Dosage: UNK
  3. DIURETIC                           /00022001/ [Concomitant]
     Active Substance: HYDROCHLOROTHIAZIDE
     Dosage: UNK

REACTIONS (8)
  - Hypocalcaemia [Unknown]
  - Electrocardiogram QT prolonged [Recovering/Resolving]
  - Sinus rhythm [Unknown]
  - Arrhythmia [Recovering/Resolving]
  - Electrocardiogram T wave inversion [Recovering/Resolving]
  - Atrial fibrillation [Recovering/Resolving]
  - Ejection fraction decreased [Recovering/Resolving]
  - Ventricular tachycardia [Recovering/Resolving]
